FAERS Safety Report 4588535-2 (Version None)
Quarter: 2005Q1

REPORT INFORMATION
  Report Type: 
  Country: None (occurrence: None)
  Receive Date: 20050222
  Receipt Date: 20050216
  Transmission Date: 20050727
  Serious: Yes (Death)
  Sender: FDA-Public Use
  Company Number: 200510380EU

PATIENT
  Age: 3 Year
  Sex: Male

DRUGS (1)
  1. RIFADIN [Suspect]
     Indication: INFECTION PROPHYLAXIS
     Dates: start: 20041108, end: 20041109

REACTIONS (6)
  - HAEMOLYTIC ANAEMIA [None]
  - HAEMOLYTIC URAEMIC SYNDROME [None]
  - INTRA-ABDOMINAL HAEMORRHAGE [None]
  - JAUNDICE [None]
  - SHOCK [None]
  - THROMBOCYTOPENIA [None]
